FAERS Safety Report 6481171-2 (Version None)
Quarter: 2009Q4

REPORT INFORMATION
  Report Type: 
  Country: None (occurrence: None)
  Receive Date: 20091208
  Receipt Date: 20091207
  Transmission Date: 20100525
  Serious: Yes (Other)
  Sender: FDA-Public Use
  Company Number: US-WYE-H11745409

PATIENT
  Sex: Male
  Weight: 98.97 kg

DRUGS (1)
  1. PRISTIQ [Suspect]
     Indication: ANXIETY
     Route: 048
     Dates: start: 20091016, end: 20091019

REACTIONS (9)
  - ANXIETY [None]
  - CONFUSIONAL STATE [None]
  - DYSPNOEA [None]
  - HALLUCINATION [None]
  - HEART RATE INCREASED [None]
  - HYPERHIDROSIS [None]
  - MENTAL DISORDER [None]
  - UNEVALUABLE EVENT [None]
  - VISION BLURRED [None]
